FAERS Safety Report 5799207-0 (Version None)
Quarter: 2008Q3

REPORT INFORMATION
  Report Type: 
  Country: None (occurrence: None)
  Receive Date: 20080702
  Receipt Date: 20080623
  Transmission Date: 20090109
  Serious: Yes (Life-Threatening, Hospitalization)
  Sender: FDA-Public Use
  Company Number: IT-PFIZER INC-2008043829

PATIENT
  Sex: Female

DRUGS (1)
  1. CHANTIX [Suspect]
     Indication: SMOKING CESSATION THERAPY
     Route: 048
     Dates: start: 20080430, end: 20080509

REACTIONS (4)
  - ABDOMINAL PAIN UPPER [None]
  - CARBOHYDRATE ANTIGEN 125 [None]
  - MALAISE [None]
  - SMALL CELL CARCINOMA [None]
